FAERS Safety Report 11340824 (Version 2)
Quarter: 2015Q3

REPORT INFORMATION
  Report Type: Spontaneous
  Country: US (occurrence: US)
  Receive Date: 20150805
  Receipt Date: 20150901
  Transmission Date: 20151125
  Serious: Yes (Other)
  Sender: FDA-Public Use
  Company Number: US-PFIZER INC-2015257611

PATIENT
  Age: 48 Year
  Sex: Female

DRUGS (3)
  1. ADRIAMYCIN [Suspect]
     Active Substance: DOXORUBICIN HYDROCHLORIDE
     Indication: ANAL CANCER
     Dosage: UNK, CYCLIC
  2. MITOMYCIN. [Suspect]
     Active Substance: MITOMYCIN
     Indication: ANAL CANCER
     Dosage: UNK, CYCLIC
  3. FLUOROURACIL. [Suspect]
     Active Substance: FLUOROURACIL
     Indication: ANAL CANCER
     Dosage: UNK, CYCLIC

REACTIONS (1)
  - Pulmonary veno-occlusive disease [Unknown]
